FAERS Safety Report 15564085 (Version 2)
Quarter: 2018Q4

REPORT INFORMATION
  Report Type: Report from Study
  Country: None (occurrence: US)
  Receive Date: 20181030
  Receipt Date: 20181220
  Transmission Date: 20190205
  Serious: Yes (Other)
  Sender: FDA-Public Use
  Company Number: US-ABBVIE-18K-163-2532925-00

PATIENT
  Sex: Female
  Weight: 86.26 kg

DRUGS (2)
  1. ARAVA [Suspect]
     Active Substance: LEFLUNOMIDE
     Indication: RHEUMATOID ARTHRITIS
     Route: 065
  2. HUMIRA [Suspect]
     Active Substance: ADALIMUMAB
     Indication: RHEUMATOID ARTHRITIS
     Route: 058

REACTIONS (11)
  - Erythema [Unknown]
  - Adverse drug reaction [Unknown]
  - Head injury [Unknown]
  - Skin lesion [Unknown]
  - Pruritus [Unknown]
  - Skin ulcer [Unknown]
  - Peripheral swelling [Unknown]
  - Dyspnoea exertional [Unknown]
  - Cardiac failure [Unknown]
  - Dyspnoea [Unknown]
  - Amnesia [Unknown]
